FAERS Safety Report 9397963 (Version 1)
Quarter: 2013Q3

REPORT INFORMATION
  Report Type: Spontaneous
  Country: JP (occurrence: JP)
  Receive Date: 20130712
  Receipt Date: 20130712
  Transmission Date: 20140515
  Serious: Yes (Other)
  Sender: FDA-Public Use
  Company Number: PHHY2013JP070506

PATIENT
  Age: 31 Year
  Sex: Male
  Weight: 69 kg

DRUGS (6)
  1. ETOPOSIDE [Suspect]
     Indication: EXTRAGONADAL PRIMARY GERM CELL TUMOUR
     Dosage: 100 MG/M2, (DAY 1-5)
  2. CISPLATIN [Suspect]
     Indication: EXTRAGONADAL PRIMARY GERM CELL TUMOUR
     Dosage: 20 MG/M2, (DAY 1 TO 5)
  3. CISPLATIN [Suspect]
     Dosage: 20 MG/M2, ON DAYS 2-6)
  4. PACLITAXEL [Suspect]
     Indication: EXTRAGONADAL PRIMARY GERM CELL TUMOUR
     Dosage: 175 MG/M2, ON DAY 1
  5. IFOSFAMIDE [Suspect]
     Indication: EXTRAGONADAL PRIMARY GERM CELL TUMOUR
     Dosage: 1.2 G/M2 ON DAYS 2-6
  6. BLEOMYCIN HYDROCHLORIDE [Suspect]
     Indication: EXTRAGONADAL PRIMARY GERM CELL TUMOUR
     Dosage: 30 MG, (DAY 1, 8 , 15)

REACTIONS (6)
  - Tumour haemorrhage [Recovered/Resolved]
  - Bone marrow failure [Unknown]
  - Pancytopenia [Recovered/Resolved]
  - Anaemia [Recovered/Resolved]
  - White blood cell count decreased [Recovered/Resolved]
  - Thrombocytopenia [Recovered/Resolved]
